FAERS Safety Report 11524401 (Version 1)
Quarter: 2015Q3

REPORT INFORMATION
  Report Type: Spontaneous
  Country: US (occurrence: US)
  Receive Date: 20150918
  Receipt Date: 20150918
  Transmission Date: 20151125
  Serious: Yes (Hospitalization)
  Sender: FDA-Public Use
  Company Number: US-ROCHE-758467

PATIENT
  Age: 51 Year
  Sex: Female

DRUGS (5)
  1. PEGASYS [Suspect]
     Active Substance: PEGINTERFERON ALFA-2A
     Indication: HEPATITIS C
     Dosage: FORM: PRE FILLED SYRINGE
     Route: 058
  2. COPEGUS [Suspect]
     Active Substance: RIBAVIRIN
     Indication: HEPATITIS C
     Route: 048
  3. LEVOTHYROXINE. [Concomitant]
     Active Substance: LEVOTHYROXINE
     Route: 065
  4. ABILIFY [Concomitant]
     Active Substance: ARIPIPRAZOLE
     Route: 065
  5. CELEXA [Concomitant]
     Active Substance: CITALOPRAM HYDROBROMIDE
     Route: 065

REACTIONS (3)
  - Vomiting [Unknown]
  - Dehydration [Unknown]
  - Disturbance in attention [Unknown]

NARRATIVE: CASE EVENT DATE: 201010
